FAERS Safety Report 8261534-5 (Version None)
Quarter: 2012Q1

REPORT INFORMATION
  Report Type: 
  Country: None (occurrence: None)
  Receive Date: 20120330
  Receipt Date: 20120316
  Transmission Date: 20120608
  Serious: Yes (Hospitalization)
  Sender: FDA-Public Use
  Company Number: AUR-APL-2012-01564

PATIENT
  Age: 44 Year
  Sex: Male

DRUGS (11)
  1. PLAVIX [Concomitant]
  2. FLONASE [Concomitant]
  3. LISINOPRIL [Concomitant]
  4. AMBIEN [Concomitant]
  5. SIMVASTATIN [Concomitant]
  6. ATENOLOL [Concomitant]
  7. ISOSORBIDE DINITRATE [Concomitant]
  8. ATIVAN [Concomitant]
  9. PAROXETINE HCL [Concomitant]
  10. METFORMIN HCL [Suspect]
     Indication: PRODUCT USED FOR UNKNOWN INDICATION
     Dosage: UNKNOWN
  11. ASPIRIN [Concomitant]

REACTIONS (8)
  - ASTHENIA [None]
  - DYSPNOEA [None]
  - CORONARY ARTERY STENOSIS [None]
  - HYPERTRIGLYCERIDAEMIA [None]
  - CONDITION AGGRAVATED [None]
  - CHEST PAIN [None]
  - FATIGUE [None]
  - GLYCOSYLATED HAEMOGLOBIN INCREASED [None]
